FAERS Safety Report 9798893 (Version 2)
Quarter: 2014Q1

REPORT INFORMATION
  Report Type: Spontaneous
  Country: US (occurrence: US)
  Receive Date: 20140106
  Receipt Date: 20140106
  Transmission Date: 20141002
  Serious: No
  Sender: FDA-Public Use
  Company Number: US-GILEAD-2010-0032250

PATIENT
  Age: 48 Year
  Sex: Female
  Weight: 81.65 kg

DRUGS (10)
  1. LETAIRIS [Suspect]
     Indication: PULMONARY ARTERIAL HYPERTENSION
     Route: 048
     Dates: start: 20100715
  2. ADCIRCA [Concomitant]
     Indication: PULMONARY ARTERIAL HYPERTENSION
  3. CLARITIN [Concomitant]
  4. FLONASE [Concomitant]
  5. OMEPRAZOLE [Concomitant]
  6. VICODIN [Concomitant]
  7. CITALOPRAM [Concomitant]
  8. ZOLPIDEM [Concomitant]
  9. LORAZEPAM [Concomitant]
  10. ALPRAZOLAM [Concomitant]

REACTIONS (6)
  - Dry mouth [Unknown]
  - Gingival bleeding [Unknown]
  - Gingival swelling [Unknown]
  - Decreased appetite [Unknown]
  - Nausea [Unknown]
  - Headache [Unknown]
